FAERS Safety Report 13068481 (Version 1)
Quarter: 2016Q4

REPORT INFORMATION
  Report Type: Spontaneous
  Country: US (occurrence: US)
  Receive Date: 20161228
  Receipt Date: 20161228
  Transmission Date: 20170207
  Serious: No
  Sender: FDA-Public Use
  Company Number: US-GLAXOSMITHKLINE-US2016GSK190235

PATIENT
  Age: 53 Year
  Sex: Female

DRUGS (2)
  1. DICLOFENAC SODIUM GEL [Suspect]
     Active Substance: DICLOFENAC SODIUM
     Indication: ARTHRITIS
  2. DICLOFENAC SODIUM GEL [Suspect]
     Active Substance: DICLOFENAC SODIUM
     Indication: ANKLE FRACTURE
     Dosage: UNK
     Dates: start: 201611, end: 20161130

REACTIONS (6)
  - Ill-defined disorder [Not Recovered/Not Resolved]
  - Dysgeusia [Not Recovered/Not Resolved]
  - Off label use [Unknown]
  - Therapeutic response unexpected [Unknown]
  - Saliva altered [Not Recovered/Not Resolved]
  - Oral discomfort [Not Recovered/Not Resolved]

NARRATIVE: CASE EVENT DATE: 201611
